FAERS Safety Report 25794694 (Version 6)
Quarter: 2025Q4

REPORT INFORMATION
  Report Type: Spontaneous
  Country: CA (occurrence: CA)
  Receive Date: 20250912
  Receipt Date: 20251030
  Transmission Date: 20260118
  Serious: Yes (Hospitalization, Other)
  Sender: ASTELLAS
  Company Number: CA-PFIZER INC-PV202500023099

PATIENT
  Age: 70 Year
  Sex: Male
  Weight: 79 kg

DRUGS (27)
  1. PADCEV [Suspect]
     Active Substance: ENFORTUMAB VEDOTIN-EJFV
     Indication: Transitional cell carcinoma metastatic
     Dosage: 97 MG D1 AND D8 OF A 21-DAY CYCLE?POWDER FOR SOLUTION FOR INFUSION
     Route: 042
     Dates: start: 20250220
  2. PADCEV [Suspect]
     Active Substance: ENFORTUMAB VEDOTIN-EJFV
     Dosage: 97 MG D1 AND D8 OF A 21-DAY CYCLE?POWDER FOR SOLUTION FOR INFUSION
     Route: 042
     Dates: start: 20250227
  3. PADCEV [Suspect]
     Active Substance: ENFORTUMAB VEDOTIN-EJFV
     Dosage: 88 MG D1 AND D8 OF A 21-DAY CYCLE?POWDER FOR SOLUTION FOR INFUSION
     Route: 042
  4. PADCEV [Suspect]
     Active Substance: ENFORTUMAB VEDOTIN-EJFV
     Dosage: 88 MG D1 AND D8 OF A 21-DAY CYCLE?POWDER FOR SOLUTION FOR INFUSION
     Route: 042
     Dates: start: 20250613
  5. PADCEV [Suspect]
     Active Substance: ENFORTUMAB VEDOTIN-EJFV
     Dosage: 88 MG, CYCLIC (D1 AND D8 OF A 21-DAY CYCLE)?POWDER FOR SOLUTION FOR INFUSION
     Route: 042
     Dates: start: 20250620
  6. PADCEV [Suspect]
     Active Substance: ENFORTUMAB VEDOTIN-EJFV
     Dosage: 87 MG, CYCLIC (D1 AND D8 OF A 21-DAY CYCLE)?POWDER FOR SOLUTION FOR INFUSION
     Route: 042
     Dates: start: 20250703
  7. PADCEV [Suspect]
     Active Substance: ENFORTUMAB VEDOTIN-EJFV
     Dosage: 87 MG, CYCLIC (D1 AND D8 OF A 21-DAY CYCLE)?POWDER FOR SOLUTION FOR INFUSION
     Route: 042
     Dates: start: 20250710
  8. PADCEV [Suspect]
     Active Substance: ENFORTUMAB VEDOTIN-EJFV
     Dosage: 87 MG, CYCLIC (D1 AND D8 OF A 21-DAY CYCLE, CYCLE 4, INFUSION 7)?POWDER FOR SOLUTION FOR INFUSION
     Route: 042
     Dates: start: 20250724
  9. PADCEV [Suspect]
     Active Substance: ENFORTUMAB VEDOTIN-EJFV
     Dosage: 87 MG, CYCLIC (D1 AND D8 OF A 21-DAY CYCLE, CYCLE 4, INFUSION 7)?POWDER FOR SOLUTION FOR INFUSION
     Route: 042
     Dates: start: 20250731
  10. PADCEV [Suspect]
     Active Substance: ENFORTUMAB VEDOTIN-EJFV
     Dosage: 87 MG, CYCLIC (D1 AND D8 OF A 21-DAY CYCLE, CYCLE 4, INFUSION 7)?POWDER FOR SOLUTION FOR INFUSION
     Route: 042
     Dates: start: 20250814
  11. PADCEV [Suspect]
     Active Substance: ENFORTUMAB VEDOTIN-EJFV
     Dosage: 87 MG, CYCLIC (D1 AND D8 OF A 21-DAY CYCLE)?POWDER FOR SOLUTION FOR INFUSION
     Route: 042
     Dates: start: 20250821
  12. PADCEV [Suspect]
     Active Substance: ENFORTUMAB VEDOTIN-EJFV
     Dosage: 87 MG, CYCLIC, D1 AND D8 OF A 21-DAY CYCLE?POWDER FOR SOLUTION FOR INFUSION
     Route: 042
     Dates: start: 20250904
  13. PADCEV [Suspect]
     Active Substance: ENFORTUMAB VEDOTIN-EJFV
     Dosage: 87 MG, CYCLIC, D1 AND D8 OF A 21-DAY CYCLE?POWDER FOR SOLUTION FOR INFUSION
     Route: 042
     Dates: start: 20250911
  14. PADCEV [Suspect]
     Active Substance: ENFORTUMAB VEDOTIN-EJFV
     Dosage: 87 MG, CYCLIC, (D1 AND D8 OF A 21-DAY CYCLE)?POWDER FOR SOLUTION FOR INFUSION
     Route: 042
     Dates: start: 20250925
  15. PADCEV [Suspect]
     Active Substance: ENFORTUMAB VEDOTIN-EJFV
     Dosage: D1 AND D8 OF A 21-DAY CYCLE?POWDER FOR SOLUTION FOR INFUSION
     Route: 042
     Dates: start: 20251002
  16. PADCEV [Suspect]
     Active Substance: ENFORTUMAB VEDOTIN-EJFV
     Dosage: D1 AND D8 OF A 21-DAY CYCLE?POWDER FOR SOLUTION FOR INFUSION
     Route: 042
     Dates: start: 20251016
  17. ACETAMINOPHEN [Concomitant]
     Active Substance: ACETAMINOPHEN
     Indication: Product used for unknown indication
     Dosage: 1 DF (325-650MG)
     Route: 048
  18. KEYTRUDA [Concomitant]
     Active Substance: PEMBROLIZUMAB
     Indication: Transitional cell carcinoma metastatic
     Dosage: UNK
     Route: 065
  19. ACETAMINOPHEN\OXYCODONE HYDROCHLORIDE [Concomitant]
     Active Substance: ACETAMINOPHEN\OXYCODONE HYDROCHLORIDE
     Indication: Product used for unknown indication
     Dosage: 5 MG
     Route: 065
  20. DIMENHYDRINATE [Concomitant]
     Active Substance: DIMENHYDRINATE
     Indication: Product used for unknown indication
     Dosage: 25-50MG PO/IV
     Route: 048
  21. EPINEPHRINE [Concomitant]
     Active Substance: EPINEPHRINE
     Indication: Product used for unknown indication
     Dosage: UNK
     Route: 048
  22. HYDROCORTISONE [Concomitant]
     Active Substance: HYDROCORTISONE
     Indication: Product used for unknown indication
     Dosage: 100 MG
     Route: 042
  23. ONDANSETRON [Concomitant]
     Active Substance: ONDANSETRON
     Indication: Premedication
     Dosage: 8 MG, AT HOME
     Route: 048
     Dates: start: 20250220
  24. OXYGEN [Concomitant]
     Active Substance: OXYGEN
     Indication: Product used for unknown indication
     Dosage: UNK
     Route: 048
  25. ALBUTEROL [Concomitant]
     Active Substance: ALBUTEROL
     Indication: Product used for unknown indication
     Dosage: UNK
     Route: 048
  26. PANTOPRAZOLE [Concomitant]
     Active Substance: PANTOPRAZOLE
     Indication: Product used for unknown indication
     Dosage: 40 MG
     Route: 048
  27. ATORVASTATIN [Concomitant]
     Active Substance: ATORVASTATIN
     Indication: Product used for unknown indication
     Dosage: 10 MG
     Route: 048

REACTIONS (17)
  - Sepsis [Recovered/Resolved]
  - Oxygen saturation decreased [Unknown]
  - Decubitus ulcer [Not Recovered/Not Resolved]
  - Back pain [Not Recovered/Not Resolved]
  - Dysphagia [Not Recovered/Not Resolved]
  - Fatigue [Not Recovered/Not Resolved]
  - Constipation [Not Recovered/Not Resolved]
  - Weight decreased [Unknown]
  - Heart rate decreased [Recovered/Resolved]
  - Blood magnesium decreased [Unknown]
  - Pruritus [Not Recovered/Not Resolved]
  - Dry skin [Unknown]
  - Infection [Unknown]
  - Malaise [Unknown]
  - Decreased appetite [Unknown]
  - Feeling abnormal [Unknown]
  - Pain [Not Recovered/Not Resolved]

NARRATIVE: CASE EVENT DATE: 20250101
